FAERS Safety Report 22010061 (Version 3)
Quarter: 2023Q2

REPORT INFORMATION
  Report Type: Spontaneous
  Country: US (occurrence: US)
  Receive Date: 20230220
  Receipt Date: 20230504
  Transmission Date: 20230721
  Serious: No
  Sender: FDA-Public Use
  Company Number: US-TEVA-2023-US-2855423

PATIENT
  Age: 21 Year
  Sex: Female
  Weight: 61.69 kg

DRUGS (8)
  1. AJOVY [Suspect]
     Active Substance: FREMANEZUMAB-VFRM
     Indication: Migraine
     Dosage: FORM STRENGTH: 225/1.5 MG/ML
     Route: 065
     Dates: start: 202207
  2. AJOVY [Suspect]
     Active Substance: FREMANEZUMAB-VFRM
     Indication: Fibromyalgia
     Dosage: FORM STRENGTH: 225/1.5 MG/ML
     Route: 065
  3. GABAPENTIN [Concomitant]
     Active Substance: GABAPENTIN
     Indication: Product used for unknown indication
     Route: 065
  4. FAMOTIDINE [Concomitant]
     Active Substance: FAMOTIDINE
     Indication: Product used for unknown indication
     Route: 065
  5. MELOXICAM [Concomitant]
     Active Substance: MELOXICAM
     Indication: Product used for unknown indication
     Route: 065
  6. SKELAXIN [Concomitant]
     Active Substance: METAXALONE
     Indication: Product used for unknown indication
     Route: 065
  7. Elitriptan (Relpax) [Concomitant]
     Indication: Breakthrough pain
     Route: 065
  8. XANAX [Concomitant]
     Active Substance: ALPRAZOLAM
     Indication: Product used for unknown indication
     Route: 065

REACTIONS (9)
  - Injection site pain [Unknown]
  - Accidental exposure to product [Unknown]
  - Product use in unapproved indication [Unknown]
  - Drug dose omission by device [Unknown]
  - Device difficult to use [Unknown]
  - Injection site swelling [Unknown]
  - Device malfunction [Unknown]
  - Injection site discharge [Unknown]
  - Chemical burn [Unknown]

NARRATIVE: CASE EVENT DATE: 20230101
